FAERS Safety Report 17636359 (Version 1)
Quarter: 2020Q2

REPORT INFORMATION
  Report Type: Spontaneous
  Country: US (occurrence: US)
  Receive Date: 20200406
  Receipt Date: 20200406
  Transmission Date: 20200713
  Serious: Yes (Death, Life-Threatening)
  Sender: FDA-Public Use
  Company Number: None

PATIENT
  Age: 57 Year
  Sex: Male
  Weight: 94.95 kg

DRUGS (14)
  1. LOVENOX [Concomitant]
     Active Substance: ENOXAPARIN SODIUM
  2. LASIX [Concomitant]
     Active Substance: FUROSEMIDE
  3. COLACE [Concomitant]
     Active Substance: DOCUSATE SODIUM
  4. LIDOCAINE. [Concomitant]
     Active Substance: LIDOCAINE
  5. SEROQUEL [Concomitant]
     Active Substance: QUETIAPINE FUMARATE
  6. TESSALON [Concomitant]
     Active Substance: BENZONATATE
  7. MELATONIN [Concomitant]
     Active Substance: MELATONIN
  8. OXYCODONE [Concomitant]
     Active Substance: OXYCODONE
  9. PEPCID [Concomitant]
     Active Substance: FAMOTIDINE
  10. KEPPRA [Concomitant]
     Active Substance: LEVETIRACETAM
  11. MIRALAX [Concomitant]
     Active Substance: POLYETHYLENE GLYCOL 3350
  12. LORBRENA [Suspect]
     Active Substance: LORLATINIB
     Indication: LUNG NEOPLASM MALIGNANT
     Route: 048
     Dates: start: 20200208
  13. ROBITUSSIN (GUAIFENESIN) [Concomitant]
     Active Substance: GUAIFENESIN
  14. MORPHINE SULFATE. [Concomitant]
     Active Substance: MORPHINE SULFATE

REACTIONS (1)
  - Death [None]

NARRATIVE: CASE EVENT DATE: 20200405
